FAERS Safety Report 21033514 (Version 1)
Quarter: 2022Q3

REPORT INFORMATION
  Report Type: Spontaneous
  Country: IT (occurrence: IT)
  Receive Date: 20220701
  Receipt Date: 20220701
  Transmission Date: 20221027
  Serious: Yes (Other)
  Sender: FDA-Public Use
  Company Number: None

PATIENT
  Age: 56 Year
  Sex: Female

DRUGS (7)
  1. PACLITAXEL [Suspect]
     Active Substance: PACLITAXEL
     Indication: Breast cancer
     Dosage: PACLITAXEL TEVA ITALIA
     Dates: start: 20220210
  2. BISOPROLOL [Concomitant]
     Active Substance: BISOPROLOL
     Indication: Cardiac failure
     Dosage: 2,5 MG
  3. ONDANSETRON HYDROCHLORIDE [Concomitant]
     Active Substance: ONDANSETRON HYDROCHLORIDE
     Indication: Product used for unknown indication
  4. FAMOTIDINE [Concomitant]
     Active Substance: FAMOTIDINE
     Indication: Product used for unknown indication
  5. DEXAMETHASONE PHOSPHATE [Concomitant]
     Active Substance: DEXAMETHASONE PHOSPHATE
     Indication: Product used for unknown indication
     Dosage: 4 MG / ML
  6. TRIMETON [Concomitant]
     Active Substance: CHLORPHENIRAMINE MALEATE
     Indication: Product used for unknown indication
  7. RABESAT [Concomitant]
     Indication: Product used for unknown indication
     Dosage: RABESAT 150 MG

REACTIONS (10)
  - Erythema [Recovering/Resolving]
  - Skin discolouration [Recovering/Resolving]
  - Onychoclasis [Recovering/Resolving]
  - Petechiae [Recovering/Resolving]
  - Hordeolum [Recovering/Resolving]
  - Epistaxis [Recovering/Resolving]
  - Hypoaesthesia [Recovering/Resolving]
  - Aphthous ulcer [Recovering/Resolving]
  - Alopecia [Recovering/Resolving]
  - Supraventricular tachycardia [Recovering/Resolving]

NARRATIVE: CASE EVENT DATE: 20220215
